FAERS Safety Report 4528740-4 (Version None)
Quarter: 2004Q4

REPORT INFORMATION
  Report Type: 
  Country: None (occurrence: None)
  Receive Date: 20041202
  Receipt Date: 20041023
  Transmission Date: 20050328
  Serious: No
  Sender: FDA-Public Use
  Company Number: 200420889BWH

PATIENT
  Age: 48 Year
  Sex: Male
  Weight: 94.3482 kg

DRUGS (4)
  1. LEVITRA [Suspect]
     Indication: ERECTILE DYSFUNCTION
     Dosage: 20 MG, TOTAL DAILY, ORAL
     Route: 048
     Dates: start: 20041022
  2. LEVITRA [Suspect]
     Indication: ERECTILE DYSFUNCTION
     Dosage: 20 MG, TOTAL DAILY, ORAL
     Route: 048
     Dates: start: 20041023
  3. LEVITRA [Suspect]
     Dates: start: 20040401
  4. VIAGRA [Concomitant]

REACTIONS (1)
  - ERECTILE DYSFUNCTION [None]
